FAERS Safety Report 15001924 (Version 1)
Quarter: 2018Q2

REPORT INFORMATION
  Report Type: Spontaneous
  Country: US (occurrence: US)
  Receive Date: 20180521
  Receipt Date: 20180521
  Transmission Date: 20180711
  Serious: Yes (Hospitalization)
  Sender: FDA-Public Use
  Company Number: None

PATIENT
  Age: 28 Year
  Sex: Male

DRUGS (14)
  1. METOCLOPRAMIDE. [Suspect]
     Active Substance: METOCLOPRAMIDE
     Indication: NAUSEA
     Dosage: OTHER FREQUENCY:EVERY 6 HOURS;?
     Route: 048
     Dates: start: 20180417, end: 20180419
  2. ALBUTEROL. [Concomitant]
     Active Substance: ALBUTEROL
  3. DOCUSATE [Concomitant]
     Active Substance: DOCUSATE
  4. HYDROMORPHONE [Concomitant]
     Active Substance: HYDROMORPHONE
  5. ACETAMINOPHEN. [Concomitant]
     Active Substance: ACETAMINOPHEN
  6. NYSTATIN. [Concomitant]
     Active Substance: NYSTATIN
  7. SULFAMETHOXAZOLE/TRIMETHOPRIM [Concomitant]
     Active Substance: SULFAMETHOXAZOLE\TRIMETHOPRIM
  8. TAMSULOSIN [Concomitant]
     Active Substance: TAMSULOSIN
  9. GABAPENTIN. [Concomitant]
     Active Substance: GABAPENTIN
  10. LEVOFLOXACIN. [Concomitant]
     Active Substance: LEVOFLOXACIN
  11. IBUPROFEN. [Concomitant]
     Active Substance: IBUPROFEN
  12. NICOTINE. [Concomitant]
     Active Substance: NICOTINE
  13. METRONIDAZOLE. [Concomitant]
     Active Substance: METRONIDAZOLE
  14. APIXABAN [Concomitant]
     Active Substance: APIXABAN

REACTIONS (4)
  - Muscle tightness [None]
  - Muscle spasms [None]
  - Tremor [None]
  - Hyperhidrosis [None]

NARRATIVE: CASE EVENT DATE: 20180419
